FAERS Safety Report 8127340-7 (Version None)
Quarter: 2012Q1

REPORT INFORMATION
  Report Type: 
  Country: None (occurrence: None)
  Receive Date: 20120210
  Receipt Date: 20120203
  Transmission Date: 20120608
  Serious: Yes (Hospitalization)
  Sender: FDA-Public Use
  Company Number: US-BRISTOL-MYERS SQUIBB COMPANY-16383879

PATIENT
  Age: 34 Year
  Sex: Female

DRUGS (8)
  1. PEMETREXED DISODIUM [Suspect]
     Indication: NON-SMALL CELL LUNG CANCER
     Dosage: 1 DF: 770 UNIT NOS
     Route: 042
     Dates: start: 20120109, end: 20120130
  2. FOLIC ACID [Concomitant]
     Dates: start: 20111230
  3. MDX-1106 [Suspect]
     Indication: NON-SMALL CELL LUNG CANCER
     Dosage: 506 (UNSPECIFIED)
     Route: 042
     Dates: start: 20120109, end: 20120130
  4. VITAMIN B-12 [Concomitant]
     Dosage: EVERY 8-9 WEEKS.
     Route: 030
     Dates: start: 20111230
  5. COMPAZINE [Concomitant]
     Indication: NAUSEA
  6. CISPLATIN [Suspect]
     Indication: NON-SMALL CELL LUNG CANCER
     Dosage: 1 DF: 115.5 UNIT NOS
     Route: 042
     Dates: start: 20120109, end: 20120130
  7. KYTRIL [Concomitant]
     Dosage: FOR 3 DAYS AFTER CHEMOTHERAPY
  8. DEXAMETHASONE [Concomitant]
     Dosage: FOR 3 DAYS AFTER CHEMOTHERAPY.

REACTIONS (1)
  - SYNCOPE [None]
